FAERS Safety Report 16582559 (Version 2)
Quarter: 2019Q3

REPORT INFORMATION
  Report Type: Spontaneous
  Country: IE (occurrence: IE)
  Receive Date: 20190717
  Receipt Date: 20190727
  Transmission Date: 20191004
  Serious: Yes (Life-Threatening, Other)
  Sender: FDA-Public Use
  Company Number: PHHY2019IE164653

PATIENT
  Age: 69 Year
  Sex: Female

DRUGS (7)
  1. LOPERAMIDE (G) [Interacting]
     Active Substance: LOPERAMIDE
     Indication: GASTROINTESTINAL STOMA COMPLICATION
     Dosage: 16 MG, Q6H (DURATION OF USE; TAKING THIS FOR 5 WEEKS PRECEDING THE EVENT POSSIBLY ADMITTED ON THIS )
     Route: 048
     Dates: end: 20190611
  2. CODEINE (G) [Concomitant]
     Dosage: 60 MG, Q8H (DOSE INCREASED)
     Route: 065
     Dates: start: 20190520
  3. CLARITHROMYCIN. [Suspect]
     Active Substance: CLARITHROMYCIN
     Indication: PNEUMONIA
     Dosage: 500 MG, Q12H
     Route: 065
     Dates: start: 20190606, end: 20190611
  4. IMODIUM [Interacting]
     Active Substance: LOPERAMIDE HYDROCHLORIDE
     Indication: GASTROINTESTINAL STOMA COMPLICATION
     Dosage: 16 MG, Q6H (DURATION OF USE; AT LEAST 5 WEEKS AS IN-PATIENT, PROBABLY ADMITTED ON THIS TREATMENT)
     Route: 048
     Dates: end: 20190611
  5. KLACID IV 500MG [Suspect]
     Active Substance: CLARITHROMYCIN
     Indication: PRODUCT USED FOR UNKNOWN INDICATION
     Dosage: 500 MG, Q12H
     Route: 042
     Dates: start: 20190601, end: 20190605
  6. CODEINE (G) [Concomitant]
     Indication: GASTROINTESTINAL STOMA COMPLICATION
     Dosage: 30 MG, Q8H
     Route: 065
     Dates: start: 20190519
  7. CODEINE (G) [Concomitant]
     Dosage: 60 MG, Q6H
     Route: 065
     Dates: start: 20190523

REACTIONS (5)
  - Drug interaction [Recovered/Resolved]
  - Ventricular fibrillation [Recovered/Resolved]
  - Torsade de pointes [Recovered/Resolved]
  - Hypertension [Unknown]
  - Cardiac arrest [Recovered/Resolved]

NARRATIVE: CASE EVENT DATE: 20190611
